FAERS Safety Report 9234349 (Version 2)
Quarter: 2013Q2

REPORT INFORMATION
  Report Type: Spontaneous
  Country: US (occurrence: US)
  Receive Date: 20130416
  Receipt Date: 20130529
  Transmission Date: 20140414
  Serious: No
  Sender: FDA-Public Use
  Company Number: US-BAYER-2013-046351

PATIENT
  Sex: Female

DRUGS (3)
  1. ULTRAVIST [Suspect]
     Indication: INVESTIGATION
  2. ULTRAVIST [Suspect]
     Indication: WEIGHT DECREASED
  3. PREDNISONE [Concomitant]

REACTIONS (1)
  - Urticaria [None]
